FAERS Safety Report 13119588 (Version 1)
Quarter: 2017Q1

REPORT INFORMATION
  Report Type: Spontaneous
  Country: BR (occurrence: BR)
  Receive Date: 20170116
  Receipt Date: 20170116
  Transmission Date: 20170428
  Serious: Yes (Other)
  Sender: FDA-Public Use
  Company Number: BR-AMGEN-BRASP2016064294

PATIENT
  Age: 36 Year
  Sex: Female
  Weight: 80.5 kg

DRUGS (4)
  1. PREDNISONE. [Suspect]
     Active Substance: PREDNISONE
     Indication: PRODUCT USED FOR UNKNOWN INDICATION
     Dosage: UNK
     Route: 065
  2. ENBREL [Suspect]
     Active Substance: ETANERCEPT
     Indication: ANKYLOSING SPONDYLITIS
     Dosage: 50 MG, 1X/WEEK
     Route: 065
     Dates: start: 2014
  3. METHOTREXATE. [Concomitant]
     Active Substance: METHOTREXATE
     Dosage: UNK
  4. ENBREL [Suspect]
     Active Substance: ETANERCEPT
     Dosage: UNK
     Route: 065
     Dates: start: 201606

REACTIONS (8)
  - Wrong technique in product usage process [Unknown]
  - Injection site discolouration [Unknown]
  - Abdominal distension [Unknown]
  - Cytomegalovirus infection [Recovering/Resolving]
  - Weight increased [Unknown]
  - Injection site mass [Unknown]
  - Injection site pain [Unknown]
  - Fear of injection [Unknown]
